FAERS Safety Report 19078781 (Version 1)
Quarter: 2021Q1

REPORT INFORMATION
  Report Type: Spontaneous
  Country: JP (occurrence: JP)
  Receive Date: 20210331
  Receipt Date: 20210331
  Transmission Date: 20210420
  Serious: Yes (Hospitalization)
  Sender: FDA-Public Use
  Company Number: JP-PFIZER INC-2021297757

PATIENT
  Age: 11 Year
  Sex: Male
  Weight: 36.5 kg

DRUGS (5)
  1. ANAEMETRO [Suspect]
     Active Substance: METRONIDAZOLE
     Dosage: 500 MG, 3X/DAY
     Route: 041
     Dates: start: 20200518, end: 20200522
  2. TAZOPIPE [Suspect]
     Active Substance: PIPERACILLIN SODIUM\TAZOBACTAM SODIUM
     Dosage: 4.5 G, 3X/DAY
     Route: 041
     Dates: start: 20200512, end: 20200525
  3. SULBACILLIN [Suspect]
     Active Substance: AMPICILLIN SODIUM\SULBACTAM SODIUM
     Dosage: 2000 MG, 2X/DAY
     Route: 041
     Dates: start: 20200508, end: 20200522
  4. TATHION [Suspect]
     Active Substance: GLUTATHIONE
     Dosage: 1 DF, 1X/DAY
     Route: 041
     Dates: start: 20200523, end: 20200525
  5. STRONGER NEO?MINOPHAGEN C [Suspect]
     Active Substance: AMMONIUM GLYCYRRHIZATE\CYSTEINE HYDROCHLORIDE\GLYCINE
     Dosage: 1 DF, 1X/DAY
     Route: 041
     Dates: start: 20200523, end: 20200525

REACTIONS (8)
  - Blood lactate dehydrogenase increased [Recovering/Resolving]
  - Eosinophil count increased [Recovering/Resolving]
  - Pyrexia [Recovering/Resolving]
  - Eczema [Recovering/Resolving]
  - Rash [Recovering/Resolving]
  - Hepatic function abnormal [Recovering/Resolving]
  - Hepatobiliary disease [Recovering/Resolving]
  - Vomiting [Recovering/Resolving]

NARRATIVE: CASE EVENT DATE: 20200519
